FAERS Safety Report 9869770 (Version 2)
Quarter: 2014Q2

REPORT INFORMATION
  Report Type: Report from Study
  Country: US (occurrence: US)
  Receive Date: 20140205
  Receipt Date: 20140418
  Transmission Date: 20141212
  Serious: Yes (Death, Other)
  Sender: FDA-Public Use
  Company Number: US-ASTELLAS-2014US001086

PATIENT
  Sex: Male

DRUGS (1)
  1. ERLOTINIB [Suspect]
     Indication: LUNG NEOPLASM MALIGNANT
     Route: 048
     Dates: start: 20130703, end: 20131205

REACTIONS (1)
  - Malignant neoplasm progression [Fatal]
